FAERS Safety Report 5610924-5 (Version None)
Quarter: 2008Q1

REPORT INFORMATION
  Report Type: 
  Country: None (occurrence: None)
  Receive Date: 20080128
  Receipt Date: 20080114
  Transmission Date: 20080703
  Serious: Yes (Other)
  Sender: FDA-Public Use
  Company Number: ALL1-2008-00106

PATIENT
  Age: 12 Year
  Sex: Male
  Weight: 26.3 kg

DRUGS (1)
  1. DAYTRANA [Suspect]
     Indication: ATTENTION DEFICIT/HYPERACTIVITY DISORDER
     Dosage: 10 MG, 1X/DAY:QD, TRANSDERMAL
     Route: 062
     Dates: start: 20060101

REACTIONS (2)
  - GROWTH RETARDATION [None]
  - WEIGHT GAIN POOR [None]
